FAERS Safety Report 10703639 (Version 1)
Quarter: 2015Q1

REPORT INFORMATION
  Report Type: Spontaneous
  Country: BR (occurrence: BR)
  Receive Date: 20150112
  Receipt Date: 20150112
  Transmission Date: 20150721
  Serious: Yes (Other)
  Sender: FDA-Public Use
  Company Number: BR-ASTRAZENECA-2015SE01847

PATIENT
  Age: 64 Year
  Sex: Male
  Weight: 98 kg

DRUGS (4)
  1. ZOLADEX [Interacting]
     Active Substance: GOSERELIN ACETATE
     Indication: PROSTATE CANCER
     Route: 058
     Dates: start: 201310
  2. DOXAZOSIN MESYLATE. [Concomitant]
     Active Substance: DOXAZOSIN MESYLATE
     Indication: DYSURIA
     Route: 048
     Dates: start: 2013
  3. ZOLADEX [Suspect]
     Active Substance: GOSERELIN ACETATE
     Indication: PROSTATE CANCER
     Route: 058
     Dates: start: 201307, end: 201308
  4. BEER [Interacting]
     Active Substance: ALCOHOL
     Route: 048
     Dates: start: 201412, end: 201412

REACTIONS (8)
  - Syncope [Recovered/Resolved]
  - Dysuria [Recovered/Resolved]
  - Weight increased [Recovering/Resolving]
  - Skin discolouration [Recovered/Resolved]
  - Aggression [Recovered/Resolved]
  - Pain in extremity [Not Recovered/Not Resolved]
  - Alcohol interaction [Recovered/Resolved]
  - Diarrhoea [Recovered/Resolved]

NARRATIVE: CASE EVENT DATE: 2013
